FAERS Safety Report 6139512-1 (Version None)
Quarter: 2009Q2

REPORT INFORMATION
  Report Type: 
  Country: None (occurrence: None)
  Receive Date: 20090401
  Receipt Date: 20090321
  Transmission Date: 20091009
  Serious: Yes (Other)
  Sender: FDA-Public Use
  Company Number: AU-PFIZER INC-2009187099

PATIENT

DRUGS (6)
  1. NEURONTIN [Suspect]
     Indication: NEURALGIA
     Dosage: 300 MG, 3X/DAY
     Route: 048
  2. AMITRIPTYLINE [Concomitant]
  3. ACETAMINOPHEN [Concomitant]
  4. IBUPROFEN TABLETS [Concomitant]
  5. OXYCONTIN [Concomitant]
  6. OXYNORM [Concomitant]

REACTIONS (3)
  - ACCIDENT [None]
  - HALLUCINATION, AUDITORY [None]
  - HALLUCINATION, VISUAL [None]
